FAERS Safety Report 13292922 (Version 2)
Quarter: 2017Q1

REPORT INFORMATION
  Report Type: Report from Study
  Country: US (occurrence: US)
  Receive Date: 20170303
  Receipt Date: 20170303
  Transmission Date: 20170428
  Serious: Yes (Other)
  Sender: FDA-Public Use
  Company Number: US-SAOL THERAPEUTICS-0701211270

PATIENT
  Sex: Male

DRUGS (2)
  1. BACLOFEN. [Suspect]
     Active Substance: BACLOFEN
     Indication: SPINAL PAIN
     Dosage: 248.25 ?G, \DAY
     Route: 037
  2. SUFENTA [Suspect]
     Active Substance: SUFENTANIL CITRATE
     Dosage: 113.92 ?G, \DAY
     Route: 037

REACTIONS (4)
  - Medical device site fibrosis [Unknown]
  - Therapeutic response decreased [Unknown]
  - Off label use [Unknown]
  - Device occlusion [Unknown]
